FAERS Safety Report 19098425 (Version 1)
Quarter: 2021Q2

REPORT INFORMATION
  Report Type: Spontaneous
  Country: US (occurrence: US)
  Receive Date: 20210406
  Receipt Date: 20210406
  Transmission Date: 20210717
  Serious: No
  Sender: FDA-Public Use
  Company Number: US-BAYER-2021-118175

PATIENT
  Age: 80 Year

DRUGS (1)
  1. MIRALAX [Suspect]
     Active Substance: POLYETHYLENE GLYCOL 3350
     Indication: NUTRITIONAL SUPPLEMENTATION
     Dosage: 17 G (;17G IN 8 OZ OF WATER DOSE)
     Route: 048

REACTIONS (2)
  - Wrong technique in product usage process [Unknown]
  - Product use in unapproved indication [None]
